FAERS Safety Report 9519076 (Version 7)
Quarter: 2013Q4

REPORT INFORMATION
  Report Type: Report from Study
  Country: PL (occurrence: PL)
  Receive Date: 20130912
  Receipt Date: 20131209
  Transmission Date: 20140711
  Serious: Yes (Hospitalization)
  Sender: FDA-Public Use
  Company Number: PL-AMGEN-POLCT2013061292

PATIENT
  Age: 19 Year
  Sex: Male
  Weight: 63.5 kg

DRUGS (6)
  1. ETANERCEPT [Suspect]
     Indication: PRODUCT USED FOR UNKNOWN INDICATION
     Dosage: 50 MG ONCE A WEEK
     Route: 058
     Dates: start: 20100302, end: 20130815
  2. PREDNISONE [Suspect]
     Indication: ARTHRITIS
     Dosage: 10 MG QD
     Route: 048
     Dates: start: 20110907
  3. SULFASALAZINE [Concomitant]
     Indication: ARTHRITIS
     Dosage: 1 G, 2X/DAY
     Route: 048
     Dates: start: 200301
  4. OMEPRAZOLE [Concomitant]
     Indication: PROPHYLAXIS
     Dosage: 20 MG QD
     Route: 048
     Dates: start: 20111221
  5. ACIDUM FOLICUM [Concomitant]
     Indication: PROPHYLAXIS
     Dosage: 15 MG, ONCE A WEEK
     Route: 048
     Dates: start: 200301
  6. VITAMIN B6 [Concomitant]
     Indication: PROPHYLAXIS
     Dosage: 50 MG, QD
     Route: 048
     Dates: start: 20111220

REACTIONS (1)
  - Anal abscess [Recovered/Resolved]
